FAERS Safety Report 15103697 (Version 1)
Quarter: 2018Q2

REPORT INFORMATION
  Report Type: Spontaneous
  Country: US (occurrence: US)
  Receive Date: 20180611
  Receipt Date: 20180611
  Transmission Date: 20180711
  Serious: Yes (Hospitalization)
  Sender: FDA-Public Use
  Company Number: None

PATIENT
  Age: 72 Year
  Sex: Male
  Weight: 70 kg

DRUGS (1)
  1. METHOTREXATE. [Suspect]
     Active Substance: METHOTREXATE
     Indication: RHEUMATOID ARTHRITIS
     Route: 048
     Dates: start: 20180507, end: 20180514

REACTIONS (6)
  - Oral pain [None]
  - Dysphagia [None]
  - Rash [None]
  - Accidental overdose [None]
  - Erythema [None]
  - Product label confusion [None]

NARRATIVE: CASE EVENT DATE: 20180514
